FAERS Safety Report 8146983-8 (Version None)
Quarter: 2012Q1

REPORT INFORMATION
  Report Type: 
  Country: None (occurrence: None)
  Receive Date: 20120217
  Receipt Date: 20120214
  Transmission Date: 20120608
  Serious: Yes (Hospitalization)
  Sender: FDA-Public Use
  Company Number: US-ASTRAZENECA-2012SE09897

PATIENT
  Age: 73 Year
  Sex: Female

DRUGS (2)
  1. PLAVIX [Concomitant]
  2. BRILINTA [Suspect]
     Route: 048
     Dates: start: 20120204, end: 20120210

REACTIONS (2)
  - ATRIAL FIBRILLATION [None]
  - DYSPNOEA [None]
